FAERS Safety Report 9247659 (Version 1)
Quarter: 2013Q2

REPORT INFORMATION
  Report Type: Spontaneous
  Country: US (occurrence: US)
  Receive Date: 20130423
  Receipt Date: 20130423
  Transmission Date: 20140414
  Serious: Yes (Other)
  Sender: FDA-Public Use
  Company Number: US-PFIZER INC-2013122317

PATIENT
  Age: 57 Year
  Sex: Female

DRUGS (18)
  1. LYRICA [Suspect]
     Dosage: 50 MG, UNK
  2. NEURONTIN [Suspect]
     Dosage: 600 MG, UNK
  3. TESSALON [Suspect]
     Dosage: 100 MG, UNK
  4. SPIRIVA [Suspect]
     Dosage: 18 UG, UNK
  5. DIABETA [Concomitant]
     Dosage: 5 MG, UNK
  6. CLARITIN [Concomitant]
     Dosage: 10 MG, UNK
  7. MACROBID [Concomitant]
     Dosage: 100 MG, UNK
  8. MICROZIDE [Concomitant]
     Dosage: 12.5 MG, UNK
  9. PYRIDIUM [Concomitant]
     Dosage: 200 MG, UNK
  10. ELAVIL [Concomitant]
     Dosage: 25 MG, UNK
  11. DRISDOL [Concomitant]
     Dosage: 50000 IU, UNK
  12. COREG [Concomitant]
     Dosage: 3.125 MG, UNK
  13. XOPENEX [Concomitant]
     Dosage: 45 UG, UNK
  14. TRICOR [Concomitant]
     Dosage: 145 MG, UNK
  15. ZOCOR [Concomitant]
     Dosage: 20 MG, UNK
  16. PRINIVIL [Concomitant]
     Dosage: 20 MG, UNK
  17. ECOTRIN [Concomitant]
     Dosage: 81 MG, UNK
  18. HELIUM/OXYGEN [Concomitant]

REACTIONS (9)
  - Lung neoplasm malignant [Unknown]
  - Carcinoid tumour pulmonary [Unknown]
  - Renal failure [Unknown]
  - Hypertension [Unknown]
  - Dyslipidaemia [Unknown]
  - Dyspnoea [Unknown]
  - Hypertriglyceridaemia [Unknown]
  - Vitamin D deficiency [Unknown]
  - Obesity [Unknown]
